FAERS Safety Report 4507903-8 (Version None)
Quarter: 2004Q4

REPORT INFORMATION
  Report Type: 
  Country: None (occurrence: None)
  Receive Date: 20041123
  Receipt Date: 20041111
  Transmission Date: 20050328
  Serious: Yes (Other)
  Sender: FDA-Public Use
  Company Number: PHFR2004GB04231

PATIENT
  Sex: 0

DRUGS (5)
  1. POTASSIUM CHLORIDE [Suspect]
  2. GLUCOSE [Suspect]
  3. CALCIUM GLUCONATE [Suspect]
  4. MAGNESIUM SULFATE [Suspect]
  5. SODIUM CHLORIDE [Suspect]

REACTIONS (1)
  - BLOOD GLUCOSE INCREASED [None]
